FAERS Safety Report 24360340 (Version 1)
Quarter: 2024Q3

REPORT INFORMATION
  Report Type: Spontaneous
  Country: US (occurrence: US)
  Receive Date: 20240925
  Receipt Date: 20240925
  Transmission Date: 20241017
  Serious: No
  Sender: CIPLA
  Company Number: US-CIPLA LTD.-2023US07787

PATIENT

DRUGS (17)
  1. DICLOFENAC [Suspect]
     Active Substance: DICLOFENAC
     Indication: Bursitis
     Dosage: 2 GRAM, QID (4 TIMES A DAY)
     Route: 061
     Dates: start: 20231104, end: 20231109
  2. DICLOFENAC [Suspect]
     Active Substance: DICLOFENAC
     Dosage: 2 GRAM, QID (4 TIMES A DAY)
     Route: 061
     Dates: start: 20231130
  3. ALLOPURINOL [Concomitant]
     Active Substance: ALLOPURINOL
     Indication: Gout
     Dosage: 300 MILLIGRAM, QD
     Route: 065
     Dates: start: 2013
  4. CARVEDILOL [Concomitant]
     Active Substance: CARVEDILOL
     Indication: Cardiac disorder
     Dosage: 6.25 MG /1 TABLET A DAY (PRESCRIBED TWO TABLETS BUT TAKES 1 TABLET)
     Route: 065
     Dates: start: 2019
  5. LOZOL [Concomitant]
     Active Substance: INDAPAMIDE
     Indication: Diuretic therapy
     Dosage: 2.5 MILLIGRAM, QD
     Route: 065
     Dates: start: 1993
  6. LOSARTAN POTASSIUM [Concomitant]
     Active Substance: LOSARTAN POTASSIUM
     Indication: Hypertension
     Dosage: 50 MILLIGRAM, QD
     Route: 065
  7. OXYBUTYNIN [Concomitant]
     Active Substance: OXYBUTYNIN\OXYBUTYNIN CHLORIDE
     Indication: Prostatic disorder
     Dosage: 10 MILLIGRAM, QD
     Route: 065
     Dates: start: 2023
  8. PROTONIX [Concomitant]
     Active Substance: PANTOPRAZOLE SODIUM
     Indication: Gastrooesophageal reflux disease
     Dosage: 40 MILLIGRAM, QD
     Route: 065
     Dates: start: 2018
  9. PROTONIX [Concomitant]
     Active Substance: PANTOPRAZOLE SODIUM
     Indication: Dyspepsia
  10. SPIRONOLACTONE ZYDUS [Concomitant]
     Indication: Diuretic therapy
     Dosage: 25 MILLIGRAM, QD
     Route: 065
     Dates: start: 2021
  11. ROSUVASTATIN [Concomitant]
     Active Substance: ROSUVASTATIN\ROSUVASTATIN CALCIUM
     Indication: Blood cholesterol abnormal
     Dosage: 40 MILLIGRAM, QD
     Route: 065
     Dates: start: 2019
  12. FLOMAX [Concomitant]
     Active Substance: TAMSULOSIN HYDROCHLORIDE
     Indication: Urinary tract disorder
     Dosage: 0.4 MILLIGRAM, QD
     Route: 065
     Dates: start: 202310
  13. NEUPRO [Concomitant]
     Active Substance: ROTIGOTINE
     Indication: Restless legs syndrome
     Dosage: 4 MILLIGRAM, QD
     Route: 065
     Dates: start: 2022
  14. MODAFINIL [Concomitant]
     Active Substance: MODAFINIL
     Indication: Ill-defined disorder
     Dosage: 200 MILLIGRAM, QD
     Route: 065
     Dates: start: 2023
  15. TRAZODONE [Concomitant]
     Active Substance: TRAZODONE HYDROCHLORIDE
     Indication: Sleep apnoea syndrome
     Dosage: 50 MILLIGRAM, QD
     Route: 065
     Dates: start: 2023
  16. REQUIP [Concomitant]
     Active Substance: ROPINIROLE HYDROCHLORIDE
     Indication: Restless legs syndrome
     Dosage: UNK
     Route: 065
     Dates: start: 1983
  17. MEROTRAX [Concomitant]
     Indication: Restless legs syndrome
     Dosage: UNK
     Route: 065
     Dates: start: 1983

REACTIONS (2)
  - Pain [Recovered/Resolved]
  - Off label use [Unknown]

NARRATIVE: CASE EVENT DATE: 20231101
